FAERS Safety Report 15173323 (Version 1)
Quarter: 2018Q3

REPORT INFORMATION
  Report Type: Spontaneous
  Country: US (occurrence: US)
  Receive Date: 20180720
  Receipt Date: 20180720
  Transmission Date: 20181010
  Serious: Yes (Hospitalization)
  Sender: FDA-Public Use
  Company Number: PHHY2018US046362

PATIENT
  Age: 35 Year
  Sex: Female

DRUGS (1)
  1. PYRIDOSTIGMINE [Suspect]
     Active Substance: PYRIDOSTIGMINE
     Indication: PRODUCT USED FOR UNKNOWN INDICATION
     Route: 065

REACTIONS (8)
  - Neuromuscular toxicity [Unknown]
  - Poisoning [Unknown]
  - Mental status changes [Unknown]
  - Respiratory depression [Unknown]
  - Drooling [Unknown]
  - Toxic encephalopathy [Unknown]
  - Intentional self-injury [Unknown]
  - Hyperhidrosis [Unknown]
